FAERS Safety Report 5163624-2 (Version None)
Quarter: 2006Q4

REPORT INFORMATION
  Report Type: 
  Country: None (occurrence: None)
  Receive Date: 20061127
  Receipt Date: 20061127
  Transmission Date: 20070319
  Serious: Yes (Hospitalization)
  Sender: FDA-Public Use
  Company Number: None

PATIENT
  Age: 29 Year
  Sex: Female

DRUGS (4)
  1. BACTRIM DS [Suspect]
     Indication: URINARY TRACT INFECTION
     Dosage: 1 TAB BID PO
     Route: 048
     Dates: start: 20060727, end: 20060806
  2. DILANTIN [Concomitant]
  3. LAMICTAL [Concomitant]
  4. TEGRETOL [Concomitant]

REACTIONS (1)
  - LETHARGY [None]
